FAERS Safety Report 7957605-0 (Version None)
Quarter: 2011Q4

REPORT INFORMATION
  Report Type: 
  Country: None (occurrence: None)
  Receive Date: 20111205
  Receipt Date: 20111125
  Transmission Date: 20120403
  Serious: Yes (Other)
  Sender: FDA-Public Use
  Company Number: BR-NOVOPROD-340426

PATIENT

DRUGS (6)
  1. CRESTOR [Concomitant]
     Indication: DYSLIPIDAEMIA
     Dosage: 1 TAB, QD
     Route: 048
  2. ASPIRIN [Concomitant]
     Indication: PROPHYLAXIS
     Dosage: 1 TAB, QD
     Route: 048
  3. LEVEMIR [Concomitant]
     Indication: TYPE 2 DIABETES MELLITUS
     Dosage: 24 U, QD
     Route: 058
     Dates: start: 20050325
  4. FLUOXETINE [Concomitant]
     Indication: DEPRESSION
     Dosage: 1 TAB, QD
     Route: 048
  5. GLUCOBAY [Concomitant]
     Indication: TYPE 2 DIABETES MELLITUS
     Dosage: TWICE DAILY / ORAL
     Route: 048
     Dates: start: 20090325
  6. VICTOZA [Suspect]
     Indication: TYPE 2 DIABETES MELLITUS
     Dosage: 1.2 MG, QD
     Route: 058
     Dates: start: 20110525, end: 20111124

REACTIONS (1)
  - PANCREATITIS CHRONIC [None]
